FAERS Safety Report 14092315 (Version 1)
Quarter: 2017Q4

REPORT INFORMATION
  Report Type: Spontaneous
  Country: LB (occurrence: LB)
  Receive Date: 20171015
  Receipt Date: 20171015
  Transmission Date: 20180321
  Serious: No
  Sender: FDA-Public Use
  Company Number: None

PATIENT
  Age: 24 Year
  Sex: Female
  Weight: 62 kg

DRUGS (2)
  1. ELLAONE [Suspect]
     Active Substance: ULIPRISTAL ACETATE
     Dosage: ?          QUANTITY:1 TABLET(S);?
     Route: 048
  2. FAVERIN [Concomitant]
     Active Substance: FLUVOXAMINE MALEATE

REACTIONS (1)
  - Acne [None]

NARRATIVE: CASE EVENT DATE: 20171001
